FAERS Safety Report 26065479 (Version 2)
Quarter: 2025Q4

REPORT INFORMATION
  Report Type: Report from Study
  Country: IN (occurrence: IN)
  Receive Date: 20251119
  Receipt Date: 20251222
  Transmission Date: 20260118
  Serious: Yes (Other)
  Sender: INCYTE
  Company Number: IN-002147023-NVSC2025IN175523

PATIENT

DRUGS (3)
  1. RUXOLITINIB [Suspect]
     Active Substance: RUXOLITINIB
     Indication: Myelofibrosis
     Dosage: 5 MG, BID
     Route: 061
  2. RUXOLITINIB [Suspect]
     Active Substance: RUXOLITINIB
     Indication: Primary myelofibrosis
     Dosage: 10 MG, BID
     Route: 061
  3. RUXOLITINIB [Suspect]
     Active Substance: RUXOLITINIB
     Indication: Extramedullary haemopoiesis

REACTIONS (9)
  - Febrile neutropenia [Unknown]
  - Splenomegaly [Unknown]
  - Escherichia infection [Unknown]
  - Asthenia [Unknown]
  - Oedema peripheral [Unknown]
  - Abdominal mass [Unknown]
  - Pallor [Unknown]
  - Bacterial infection [Unknown]
  - Off label use [Unknown]
